FAERS Safety Report 5549997-7 (Version None)
Quarter: 2007Q4

REPORT INFORMATION
  Report Type: 
  Country: None (occurrence: None)
  Receive Date: 20071128
  Receipt Date: 20070117
  Transmission Date: 20080405
  Serious: Yes (Other)
  Sender: FDA-Public Use
  Company Number: 2007004985

PATIENT
  Age: 53 Year
  Sex: Male
  Weight: 89.8 kg

DRUGS (1)
  1. LIPITOR [Suspect]
     Indication: BLOOD CHOLESTEROL INCREASED
     Dosage: 10 MG (10 MG,1 IN 1 D)
     Dates: start: 20060101, end: 20061221

REACTIONS (2)
  - ASTHENIA [None]
  - MUSCLE SPASMS [None]
